FAERS Safety Report 5403979-4 (Version None)
Quarter: 2007Q3

REPORT INFORMATION
  Report Type: 
  Country: None (occurrence: None)
  Receive Date: 20070802
  Receipt Date: 20070727
  Transmission Date: 20080115
  Serious: Yes (Other)
  Sender: FDA-Public Use
  Company Number: B0476494A

PATIENT
  Age: 38 Year
  Sex: Male

DRUGS (4)
  1. VALTREX [Suspect]
     Indication: VARICELLA
     Dosage: 1000MG PER DAY
     Route: 048
     Dates: start: 20070618, end: 20070620
  2. CONIEL [Concomitant]
     Indication: DRUG USE FOR UNKNOWN INDICATION
     Route: 048
  3. NOVOLIN R [Concomitant]
     Indication: DRUG USE FOR UNKNOWN INDICATION
  4. LOXONIN [Concomitant]
     Indication: DRUG USE FOR UNKNOWN INDICATION
     Route: 065

REACTIONS (3)
  - DIZZINESS [None]
  - HALLUCINATION [None]
  - PSYCHIATRIC SYMPTOM [None]
